FAERS Safety Report 14695244 (Version 5)
Quarter: 2018Q3

REPORT INFORMATION
  Report Type: Spontaneous
  Country: US (occurrence: US)
  Receive Date: 20180329
  Receipt Date: 20180809
  Transmission Date: 20181010
  Serious: Yes (Hospitalization)
  Sender: FDA-Public Use
  Company Number: US-ACTELION-A-NJ2018-169798

PATIENT
  Age: 58 Year
  Sex: Female
  Weight: 239 kg

DRUGS (17)
  1. AMLODIPINE [Concomitant]
     Active Substance: AMLODIPINE BESYLATE
  2. UPTRAVI [Suspect]
     Active Substance: SELEXIPAG
     Dosage: UNK
     Route: 048
     Dates: start: 20160806
  3. FLONASE [Concomitant]
     Active Substance: FLUTICASONE PROPIONATE
  4. NORCO [Concomitant]
     Active Substance: ACETAMINOPHEN\HYDROCODONE BITARTRATE
  5. K?DUR [Concomitant]
     Active Substance: POTASSIUM CHLORIDE
  6. ZAROXOLYN [Concomitant]
     Active Substance: METOLAZONE
  7. NEXIUM [Concomitant]
     Active Substance: ESOMEPRAZOLE MAGNESIUM
  8. ALDACTONE [Concomitant]
     Active Substance: SPIRONOLACTONE
  9. LETAIRIS [Concomitant]
     Active Substance: AMBRISENTAN
  10. DIGOXIN. [Concomitant]
     Active Substance: DIGOXIN
  11. ADCIRCA [Concomitant]
     Active Substance: TADALAFIL
  12. UPTRAVI [Suspect]
     Active Substance: SELEXIPAG
     Indication: PULMONARY ARTERIAL HYPERTENSION
     Dosage: 1200 MCG, BID
     Route: 048
     Dates: start: 20160806
  13. OPSUMIT [Suspect]
     Active Substance: MACITENTAN
     Indication: PULMONARY ARTERIAL HYPERTENSION
     Dosage: 10 MG, QD
     Route: 048
  14. LANOXIN [Concomitant]
     Active Substance: DIGOXIN
  15. NORVASC [Concomitant]
     Active Substance: AMLODIPINE BESYLATE
  16. LASIX [Concomitant]
     Active Substance: FUROSEMIDE
  17. NEUROTIN [Concomitant]
     Active Substance: GABAPENTIN

REACTIONS (7)
  - Urinary tract infection [Unknown]
  - Pneumonia [Recovered/Resolved]
  - Swelling face [Unknown]
  - Malaise [Unknown]
  - Parotitis [Unknown]
  - Feeling abnormal [Unknown]
  - Amnesia [Unknown]

NARRATIVE: CASE EVENT DATE: 201803
